FAERS Safety Report 8612169-3 (Version None)
Quarter: 2012Q3

REPORT INFORMATION
  Report Type: 
  Country: None (occurrence: None)
  Receive Date: 20120822
  Receipt Date: 20120817
  Transmission Date: 20120928
  Serious: No
  Sender: FDA-Public Use
  Company Number: US-TEVA-354079USA

PATIENT
  Sex: Female

DRUGS (2)
  1. PROAIR HFA [Suspect]
     Indication: CHRONIC OBSTRUCTIVE PULMONARY DISEASE
     Dosage: AS NEEDED
  2. PROAIR HFA [Suspect]
     Indication: DYSPNOEA

REACTIONS (1)
  - DRUG EFFECT DECREASED [None]
